FAERS Safety Report 20698789 (Version 2)
Quarter: 2022Q2

REPORT INFORMATION
  Report Type: Report from Study
  Country: CO (occurrence: CO)
  Receive Date: 20220412
  Receipt Date: 20220601
  Transmission Date: 20220721
  Serious: No
  Sender: FDA-Public Use
  Company Number: CO-BAYER-2022A022033

PATIENT
  Sex: Female

DRUGS (3)
  1. EYLEA [Suspect]
     Active Substance: AFLIBERCEPT
     Indication: Age-related macular degeneration
     Dosage: OS, SOLUTION FOR INJECTION (40MG.ML)
     Dates: start: 20210916, end: 20210916
  2. EYLEA [Suspect]
     Active Substance: AFLIBERCEPT
     Dosage: OS, SOLUTION FOR INJECTION (40MG.ML)
     Dates: start: 20211021, end: 20211021
  3. EYLEA [Suspect]
     Active Substance: AFLIBERCEPT
     Dosage: OS, SOLUTION FOR INJECTION (40MG.ML)
     Dates: start: 20211125, end: 20211125

REACTIONS (2)
  - Inappropriate schedule of product administration [Unknown]
  - Ocular hyperaemia [Not Recovered/Not Resolved]

NARRATIVE: CASE EVENT DATE: 20220101
